FAERS Safety Report 8904079 (Version 2)
Quarter: 2012Q4

REPORT INFORMATION
  Report Type: 
  Country: US (occurrence: US)
  Receive Date: 20121112
  Receipt Date: 20121206
  Transmission Date: 20130627
  Serious: Yes (Other)
  Sender: FDA-Public Use
  Company Number: US-BRISTOL-MYERS SQUIBB COMPANY-17093717

PATIENT
  Age: 39 Year
  Sex: Female
  Weight: 49.89 kg

DRUGS (4)
  1. KENALOG-40 INJ [Suspect]
     Indication: SYSTEMIC LUPUS ERYTHEMATOSUS
     Dosage: Inj
     Dates: start: 201110
  2. VICODIN [Concomitant]
     Indication: PAIN
  3. INDERAL [Concomitant]
     Indication: PALPITATIONS
  4. KLONOPIN [Concomitant]
     Indication: ANXIETY

REACTIONS (2)
  - Injection site atrophy [Not Recovered/Not Resolved]
  - Drug administration error [Unknown]
